FAERS Safety Report 24573841 (Version 2)
Quarter: 2024Q4

REPORT INFORMATION
  Report Type: Spontaneous
  Country: JP (occurrence: JP)
  Receive Date: 20241103
  Receipt Date: 20241205
  Transmission Date: 20250115
  Serious: Yes (Hospitalization, Other)
  Sender: AMGEN
  Company Number: JP-KYOWAKIRIN-2024KK023955

PATIENT

DRUGS (3)
  1. PEGFILGRASTIM [Suspect]
     Active Substance: PEGFILGRASTIM
     Indication: Product used for unknown indication
     Dosage: THE PATIENT RECEIVED G-LASTA 2 WEEKS BEFORE THE DAY OF THIS REPORT.
     Route: 058
     Dates: start: 202410
  2. DOXORUBICIN HYDROCHLORIDE [Concomitant]
     Active Substance: DOXORUBICIN HYDROCHLORIDE
     Indication: Product used for unknown indication
     Dosage: UNK
     Route: 065
  3. CYCLOPHOSPHAMIDE [Concomitant]
     Active Substance: CYCLOPHOSPHAMIDE
     Indication: Product used for unknown indication
     Dosage: UNK
     Route: 065

REACTIONS (3)
  - White blood cell count increased [Recovered/Resolved]
  - Neoplasm malignant [Unknown]
  - Therapeutic response increased [Unknown]

NARRATIVE: CASE EVENT DATE: 20241023
